FAERS Safety Report 16040406 (Version 2)
Quarter: 2019Q2

REPORT INFORMATION
  Report Type: Report from Study
  Country: None (occurrence: CA)
  Receive Date: 20190306
  Receipt Date: 20190410
  Transmission Date: 20190711
  Serious: Yes (Other)
  Sender: FDA-Public Use
  Company Number: CA-ABBVIE-19K-028-2692237-00

PATIENT
  Sex: Male

DRUGS (1)
  1. HUMIRA [Suspect]
     Active Substance: ADALIMUMAB
     Indication: CROHN^S DISEASE
     Route: 058
     Dates: start: 20151217

REACTIONS (4)
  - Abdominal distension [Not Recovered/Not Resolved]
  - Irritable bowel syndrome [Unknown]
  - Contusion [Not Recovered/Not Resolved]
  - Intestinal polyp [Recovered/Resolved]
